FAERS Safety Report 9061428 (Version 1)
Quarter: 2013Q1

REPORT INFORMATION
  Report Type: Spontaneous
  Country: GB (occurrence: GB)
  Receive Date: 20130204
  Receipt Date: 20130204
  Transmission Date: 20140127
  Serious: Yes (Hospitalization)
  Sender: FDA-Public Use
  Company Number: GB-SANOFI-AVENTIS-2013SA006691

PATIENT
  Age: 17 Year
  Sex: Female
  Weight: 63 kg

DRUGS (6)
  1. HYDROXYCHLOROQUINE SULFATE [Suspect]
     Indication: JUVENILE IDIOPATHIC ARTHRITIS
     Dosage: DOSE 200, UNIT UNSPECIFIED?DAILY DOSE 200, UNITS UNSPECIFIED?CUMULATIVE DOSE 200 ,UNITS UNSPECIFIED
     Route: 065
     Dates: start: 20130102, end: 20130103
  2. METHOTREXATE [Concomitant]
     Dosage: DOSE: 15 UNITS UNSPECIFIED
     Dates: start: 201110, end: 201112
  3. METHOTREXATE [Concomitant]
     Dosage: DOSE: 20 UNITS UNKNOWN
     Dates: start: 201112, end: 20130105
  4. AMITRIPTYLINE [Concomitant]
     Dosage: AT NIGHT. DOSE: 20 UNITS UNKNOWN
     Dates: start: 201201
  5. NAPROXEN [Concomitant]
     Dosage: AT NIGHT. DOSE: 500 UNITS UNKNOWN
     Dates: start: 201110
  6. FOLIC ACID [Concomitant]
     Dosage: DOSE: 10 UNITS UNKNOWN

REACTIONS (9)
  - Drug reaction with eosinophilia and systemic symptoms [Recovering/Resolving]
  - Body temperature increased [Recovering/Resolving]
  - Heart rate increased [Recovering/Resolving]
  - C-reactive protein increased [Recovering/Resolving]
  - White blood cell count increased [Recovering/Resolving]
  - Neutrophil count increased [Recovering/Resolving]
  - Eosinophil count increased [Recovering/Resolving]
  - Rash erythematous [Recovering/Resolving]
  - Rash pruritic [Recovering/Resolving]
